FAERS Safety Report 10082603 (Version 1)
Quarter: 2014Q2

REPORT INFORMATION
  Report Type: Spontaneous
  Country: IT (occurrence: IT)
  Receive Date: 20140416
  Receipt Date: 20140416
  Transmission Date: 20141212
  Serious: Yes (Hospitalization)
  Sender: FDA-Public Use
  Company Number: IT-MYLANLABS-2014S1008043

PATIENT
  Age: 34 Year
  Sex: Female

DRUGS (3)
  1. RAMIPRIL [Suspect]
     Indication: PRODUCT USED FOR UNKNOWN INDICATION
     Dosage: 21 DF TOTAL
     Route: 048
     Dates: start: 20130925, end: 20130925
  2. AMLODIPINE BESYLATE [Suspect]
     Indication: PRODUCT USED FOR UNKNOWN INDICATION
     Dosage: 14 DF TOTAL
     Route: 048
     Dates: start: 20130925, end: 20130925
  3. DELTACORTENE [Suspect]
     Indication: PRODUCT USED FOR UNKNOWN INDICATION
     Dosage: 6 DF TOTAL
     Route: 048
     Dates: start: 20130925, end: 20130925

REACTIONS (4)
  - Hypotension [Recovered/Resolved]
  - Intentional self-injury [Recovered/Resolved]
  - Drug abuse [Recovered/Resolved]
  - Overdose [Recovered/Resolved]
